FAERS Safety Report 5125849-1 (Version None)
Quarter: 2006Q3

REPORT INFORMATION
  Report Type: 
  Country: None (occurrence: None)
  Receive Date: 20060818
  Receipt Date: 20060606
  Transmission Date: 20061208
  Serious: No
  Sender: FDA-Public Use
  Company Number: SUS1-2006-00481

PATIENT
  Age: 48 Year
  Sex: Male
  Weight: 113.4 kg

DRUGS (3)
  1. FOSRENOL [Suspect]
     Indication: RENAL FAILURE
     Dosage: 2000 MG, 3X/DAY:TID
     Dates: start: 20040101
  2. ATENOLOL [Concomitant]
  3. DIALVIT (ASCORBIC ACID, FOLIC ACID, PYRIDOXINE HYDROCHLORIDE, RIBOFLAV [Concomitant]

REACTIONS (4)
  - DIARRHOEA [None]
  - NAUSEA [None]
  - PHARMACEUTICAL PRODUCT COMPLAINT [None]
  - PRESCRIBED OVERDOSE [None]
